FAERS Safety Report 25727408 (Version 1)
Quarter: 2025Q3

REPORT INFORMATION
  Report Type: Spontaneous
  Country: EU (occurrence: EU)
  Receive Date: 20250826
  Receipt Date: 20250826
  Transmission Date: 20251021
  Serious: Yes (Hospitalization, Other)
  Sender: BOEHRINGER INGELHEIM
  Company Number: EU-BoehringerIngelheim-2025-BI-089772

PATIENT
  Age: 74 Year
  Sex: Female

DRUGS (6)
  1. EMPAGLIFLOZIN [Suspect]
     Active Substance: EMPAGLIFLOZIN
     Indication: Type 2 diabetes mellitus
  2. GLICLAZIDE [Concomitant]
     Active Substance: GLICLAZIDE
     Indication: Product used for unknown indication
  3. AMLODIPINE [Concomitant]
     Active Substance: AMLODIPINE BESYLATE
     Indication: Product used for unknown indication
  4. METFORMIN [Concomitant]
     Active Substance: METFORMIN HYDROCHLORIDE
     Indication: Product used for unknown indication
  5. RAMIPRIL [Concomitant]
     Active Substance: RAMIPRIL
     Indication: Product used for unknown indication
  6. ESOMEPRAZOLE [Concomitant]
     Active Substance: ESOMEPRAZOLE
     Indication: Product used for unknown indication

REACTIONS (18)
  - Euglycaemic diabetic ketoacidosis [Recovering/Resolving]
  - Septic shock [Recovered/Resolved]
  - Road traffic accident [Unknown]
  - Brain contusion [Unknown]
  - Subarachnoid haemorrhage [Not Recovered/Not Resolved]
  - Craniofacial fracture [Unknown]
  - Traumatic haemothorax [Unknown]
  - Splenic injury [Unknown]
  - Bacteraemia [Unknown]
  - Dermo-hypodermitis [Not Recovered/Not Resolved]
  - Skin wound [Not Recovered/Not Resolved]
  - Staphylococcal bacteraemia [Recovering/Resolving]
  - Blood culture positive [Recovering/Resolving]
  - Endocarditis [Unknown]
  - Splenic embolism [Unknown]
  - Renal embolism [Not Recovered/Not Resolved]
  - General physical health deterioration [Recovering/Resolving]
  - Atrial fibrillation [Unknown]
